FAERS Safety Report 6973688-9 (Version None)
Quarter: 2010Q3

REPORT INFORMATION
  Report Type: 
  Country: None (occurrence: None)
  Receive Date: 20100909
  Receipt Date: 20100902
  Transmission Date: 20110219
  Serious: Yes (Hospitalization)
  Sender: FDA-Public Use
  Company Number: US-ELI_LILLY_AND_COMPANY-US201009001413

PATIENT
  Age: 81 Year
  Sex: Male

DRUGS (5)
  1. HUMALOG [Suspect]
     Indication: DIABETES MELLITUS
     Dosage: 15 U, EACH MORNING
  2. HUMALOG [Suspect]
     Dosage: 12 U, OTHER
  3. HUMALOG [Suspect]
     Dosage: 12 U, EACH EVENING
  4. HUMALOG [Suspect]
     Dosage: UNK, AS NEEDED
  5. PREDNISONE [Concomitant]
     Indication: T-CELL LYMPHOMA

REACTIONS (4)
  - BLOOD GLUCOSE INCREASED [None]
  - INCORRECT DOSE ADMINISTERED [None]
  - MACULAR DEGENERATION [None]
  - T-CELL LYMPHOMA [None]
